FAERS Safety Report 18888496 (Version 4)
Quarter: 2021Q2

REPORT INFORMATION
  Report Type: Spontaneous
  Country: US (occurrence: US)
  Receive Date: 20210212
  Receipt Date: 20210419
  Transmission Date: 20210717
  Serious: No
  Sender: FDA-Public Use
  Company Number: NVSC2021US027317

PATIENT
  Sex: Male

DRUGS (7)
  1. RYDAPT [Suspect]
     Active Substance: MIDOSTAURIN
     Dosage: UNK
     Route: 065
  2. RYDAPT [Suspect]
     Active Substance: MIDOSTAURIN
     Dosage: TAKE 4 CAPSULE BY MOUTH TWICE A DAY WITH MEALS.TAKE ZOFRAN HALF AN HOUR BEFORE TAKING MEDICAT
     Route: 048
  3. RYDAPT [Suspect]
     Active Substance: MIDOSTAURIN
     Dosage: TAKE 4 CAPSULE BY MOUTH TWICE A DAY WITH MEALS.TAKE ZOFRAN HALF AN HOUR BEFORE TAKING MEDICAT
     Route: 048
  4. ZOFRAN [Concomitant]
     Active Substance: ONDANSETRON HYDROCHLORIDE
     Indication: PRODUCT USED FOR UNKNOWN INDICATION
     Dosage: UNK (HALF AN HOUR BEFORE TAKING MEDICATION)
     Route: 065
  5. RYDAPT [Suspect]
     Active Substance: MIDOSTAURIN
     Indication: SYSTEMIC MASTOCYTOSIS
     Dosage: 4 DF, BID (TAKE 4 CAPSULE BY MOUTH TWICE A DAY WITH MEALS.TAKE ZOFRAN HALF AN HOUR BEFORE TAKING MED
     Route: 048
  6. RYDAPT [Suspect]
     Active Substance: MIDOSTAURIN
     Dosage: UNK
     Route: 065
  7. RYDAPT [Suspect]
     Active Substance: MIDOSTAURIN
     Dosage: 4 DF, QD
     Route: 048

REACTIONS (3)
  - Vomiting [Not Recovered/Not Resolved]
  - Retching [Unknown]
  - Rash macular [Not Recovered/Not Resolved]
